FAERS Safety Report 8560508-4 (Version None)
Quarter: 2012Q3

REPORT INFORMATION
  Report Type: 
  Country: None (occurrence: None)
  Receive Date: 20120802
  Receipt Date: 20070615
  Transmission Date: 20120928
  Serious: Yes (Other)
  Sender: FDA-Public Use
  Company Number: CO-PFIZER INC-2012185114

PATIENT
  Age: 53 Year
  Sex: Female

DRUGS (10)
  1. ACETYLSALICYLIC ACID [Concomitant]
     Dosage: 100 MG, 1X/DAY
  2. LIPITOR [Suspect]
     Indication: DYSLIPIDAEMIA
     Dosage: 20 MG, 1X/DAY
  3. AMITRIPTYLINE HYDROCHLORIDE [Concomitant]
     Dosage: 12.5 MG, 1X/DAY
  4. QUINAPRIL AND HYDROCHLOROTHIAZIDE [Suspect]
     Indication: HYPERTENSION
     Dosage: QUINAPRIL/HYDROCHLOROTHIAZIDE 20/12.5 MG 1X/DAY
  5. LIPITOR [Suspect]
     Dosage: 10 MG, 1X/DAY
  6. OLMESARTAN MEDOXOMIL AND HYDROCHLOROTHIZIDE [Suspect]
     Indication: ESSENTIAL HYPERTENSION
     Dosage: OLMESARTAN/HYDROCHLOROTHIAZIDE 20/12.5 MG 1X/DAY
  7. NIFEDIPINE [Concomitant]
     Dosage: 30 MG, 2X/DAY
  8. NIFEDIPINE [Concomitant]
     Dosage: 60 MG, 2X/DAY
  9. METOPROLOL TARTRATE [Concomitant]
     Dosage: 50 MG, 2X/DAY
  10. METOPROLOL TARTRATE [Concomitant]
     Dosage: 50 MG, 3X/DAY

REACTIONS (6)
  - HEADACHE [None]
  - OEDEMA PERIPHERAL [None]
  - HYPERTENSIVE EMERGENCY [None]
  - OBESITY [None]
  - HEMIPARESIS [None]
  - MUSCULOSKELETAL DISCOMFORT [None]
